FAERS Safety Report 10243793 (Version 1)
Quarter: 2014Q1

REPORT INFORMATION
  Report Type: Spontaneous
  Country: US (occurrence: None)
  Receive Date: 20140306
  Receipt Date: 20140306
  Transmission Date: 20141002
  Serious: Yes (Hospitalization)
  Sender: FDA-Public Use
  Company Number: 163-21880-13113905

PATIENT
  Age: 61 Year
  Sex: Male
  Weight: 96.2 kg

DRUGS (8)
  1. REVLIMID (LENALIDOMIDE) (CAPSULES) [Suspect]
     Indication: PLASMA CELL MYELOMA
     Dosage: 25 MG, 21 IN 21 D, PO
     Route: 048
     Dates: start: 2006
  2. DEXAMETHASONE [Concomitant]
  3. LIPITOR (ATORVASTATIN) [Concomitant]
  4. DIOVAN (VALSARTAN) [Concomitant]
  5. OMEPRAZOLE [Concomitant]
  6. WARFARIN [Concomitant]
  7. CALCIUM + D3 (CALCIUM D3) [Concomitant]
  8. BACTRIM [Concomitant]

REACTIONS (1)
  - Pneumonia [None]
